FAERS Safety Report 19731443 (Version 1)
Quarter: 2021Q3

REPORT INFORMATION
  Report Type: Spontaneous
  Country: US (occurrence: US)
  Receive Date: 20210820
  Receipt Date: 20210820
  Transmission Date: 20211014
  Serious: Yes (Hospitalization, Other)
  Sender: FDA-Public Use
  Company Number: US-SA-2019SA314860

PATIENT
  Age: 61 Year
  Sex: Male

DRUGS (6)
  1. DUPIXENT [Suspect]
     Active Substance: DUPILUMAB
     Indication: DERMATITIS
     Dosage: 300 MG, QOW (300 MG/2ML)
     Route: 058
     Dates: start: 20190713
  2. AZELASTINE. [Concomitant]
     Active Substance: AZELASTINE HYDROCHLORIDE
     Dosage: 137 UG, QD
  3. LUNESTA [Concomitant]
     Active Substance: ESZOPICLONE
     Dosage: 3 MG, QD
  4. LEVOTHYROXIN [Concomitant]
     Active Substance: LEVOTHYROXINE
     Dosage: 50 UG, QD
  5. TRAZODONE [Concomitant]
     Active Substance: TRAZODONE HYDROCHLORIDE
     Dosage: 100 MG, QD
  6. ROZEREM [Concomitant]
     Active Substance: RAMELTEON
     Dosage: 8 MG, QD

REACTIONS (6)
  - Dry skin [Unknown]
  - Pruritus [Unknown]
  - Dermatitis [Unknown]
  - Product use in unapproved indication [Unknown]
  - Hospitalisation [Unknown]
  - Skin exfoliation [Unknown]

NARRATIVE: CASE EVENT DATE: 20190713
